FAERS Safety Report 5379261-0 (Version None)
Quarter: 2007Q3

REPORT INFORMATION
  Report Type: 
  Country: None (occurrence: None)
  Receive Date: 20070705
  Receipt Date: 20070625
  Transmission Date: 20080115
  Serious: Yes (Other)
  Sender: FDA-Public Use
  Company Number: JP-PFIZER INC-2007039177

PATIENT
  Age: 70 Year
  Sex: Male

DRUGS (3)
  1. ZYVOX [Suspect]
     Indication: ABDOMINAL ABSCESS
     Dosage: DAILY DOSE:1200MG
     Route: 042
     Dates: start: 20070501, end: 20070502
  2. BISOLVON [Concomitant]
     Dates: start: 20070420, end: 20070505
  3. OMEPRAL [Concomitant]

REACTIONS (1)
  - HAEMORRHAGE [None]
